FAERS Safety Report 7638600-8 (Version None)
Quarter: 2011Q3

REPORT INFORMATION
  Report Type: 
  Country: None (occurrence: None)
  Receive Date: 20110726
  Receipt Date: 20110726
  Transmission Date: 20111222
  Serious: No
  Sender: FDA-Public Use
  Company Number: None

PATIENT
  Age: 25 Year
  Sex: Male
  Weight: 121.1104 kg

DRUGS (1)
  1. SERTRALINE HYDROCHLORIDE [Suspect]
     Indication: DEPRESSION
     Dosage: ONCE QD ORAL
     Route: 048

REACTIONS (4)
  - AGITATION [None]
  - IRRITABILITY [None]
  - RESTLESSNESS [None]
  - PRODUCT SUBSTITUTION ISSUE [None]
